FAERS Safety Report 17123881 (Version 1)
Quarter: 2019Q4

REPORT INFORMATION
  Report Type: Spontaneous
  Country: DE (occurrence: DE)
  Receive Date: 20191206
  Receipt Date: 20191206
  Transmission Date: 20200122
  Serious: Yes (Other)
  Sender: FDA-Public Use
  Company Number: DE-ASTRAZENECA-2019SF73338

PATIENT
  Age: 41 Year
  Sex: Female

DRUGS (7)
  1. FOSTER [Concomitant]
     Active Substance: BECLOMETHASONE\FORMOTEROL
     Dosage: 100/6?G
  2. AZATHIOPRIN [Concomitant]
     Active Substance: AZATHIOPRINE
     Dosage: 75 MG 1-0-0
  3. FASENRA [Concomitant]
     Active Substance: BENRALIZUMAB
     Dosage: 30.0MG UNKNOWN
     Dates: start: 201806
  4. PREDNISOLONE. [Concomitant]
     Active Substance: PREDNISOLONE
     Dosage: 5 MG/2.5 MG IN DAILY ALTERNATION
  5. SYMBICORT [Suspect]
     Active Substance: BUDESONIDE\FORMOTEROL FUMARATE DIHYDRATE
     Indication: ASTHMA
     Dosage: UNKNOWN
     Route: 055
  6. SPIRIVA [Concomitant]
     Active Substance: TIOTROPIUM BROMIDE MONOHYDRATE
  7. DULOXETIN [Concomitant]
     Active Substance: DULOXETINE
     Dosage: 20 MG

REACTIONS (3)
  - Exposure during pregnancy [Unknown]
  - Eosinophilic granulomatosis with polyangiitis [Unknown]
  - Asthma [Unknown]
